FAERS Safety Report 4489873-4 (Version None)
Quarter: 2004Q4

REPORT INFORMATION
  Report Type: 
  Country: None (occurrence: None)
  Receive Date: 20041101
  Receipt Date: 20041025
  Transmission Date: 20050328
  Serious: Yes (Other)
  Sender: FDA-Public Use
  Company Number: US-BRISTOL-MYERS SQUIBB COMPANY-12743902

PATIENT
  Age: 55 Year
  Sex: Female
  Weight: 62 kg

DRUGS (8)
  1. ERBITUX [Suspect]
     Indication: COLORECTAL CANCER STAGE IV
     Route: 042
     Dates: start: 20040818, end: 20040818
  2. BENADRYL [Concomitant]
     Indication: PREMEDICATION
     Route: 042
     Dates: start: 20040818, end: 20040818
  3. DECADRON [Concomitant]
     Indication: PREMEDICATION
     Route: 042
     Dates: start: 20040818, end: 20040818
  4. KYTRIL [Concomitant]
     Indication: PREMEDICATION
     Route: 042
     Dates: start: 20040818, end: 20040818
  5. IRINOTECAN HCL [Concomitant]
     Route: 042
  6. ESTRADIOL [Concomitant]
  7. LOMOTIL [Concomitant]
  8. NEXIUM [Concomitant]

REACTIONS (2)
  - BLOOD BILIRUBIN INCREASED [None]
  - HEPATIC ENZYME INCREASED [None]
